FAERS Safety Report 10027013 (Version 2)
Quarter: 2014Q1

REPORT INFORMATION
  Report Type: Spontaneous
  Country: US (occurrence: US)
  Receive Date: 20140321
  Receipt Date: 20140321
  Transmission Date: 20141002
  Serious: No
  Sender: FDA-Public Use
  Company Number: US-MYLANLABS-2013S1029171

PATIENT
  Age: 64 Year
  Sex: Male
  Weight: 107.05 kg

DRUGS (9)
  1. BACLOFEN [Suspect]
     Indication: MUSCLE SPASMS
     Route: 048
     Dates: start: 201310, end: 201311
  2. BACLOFEN [Suspect]
     Indication: MUSCLE SPASTICITY
     Route: 048
     Dates: start: 201310, end: 201311
  3. AMPYRA [Suspect]
     Indication: MULTIPLE SCLEROSIS
     Route: 048
     Dates: start: 201303
  4. AMPYRA [Suspect]
     Indication: PARAPARESIS
     Route: 048
     Dates: start: 201303
  5. NAPROXEN [Suspect]
     Indication: HEADACHE
  6. ARICEPT [Concomitant]
     Route: 048
  7. COPAXONE [Concomitant]
     Route: 058
  8. ASA [Concomitant]
  9. MULTIVITAMIN [Concomitant]

REACTIONS (3)
  - Confusional state [Recovered/Resolved]
  - Muscle spasms [Recovered/Resolved]
  - Blood creatinine increased [Recovered/Resolved]
